FAERS Safety Report 9206227 (Version 4)
Quarter: 2013Q2

REPORT INFORMATION
  Report Type: Spontaneous
  Country: US (occurrence: US)
  Receive Date: 20130403
  Receipt Date: 20130515
  Transmission Date: 20140414
  Serious: Yes (Death, Other)
  Sender: FDA-Public Use
  Company Number: US-PFIZER INC-2013101089

PATIENT
  Age: 69 Year
  Sex: Female
  Weight: 78.46 kg

DRUGS (5)
  1. ZITHROMAX [Suspect]
     Indication: LUNG INFILTRATION
     Dosage: 500 MG, 1X/DAY (500 MG QD X 3 D)
     Route: 048
     Dates: start: 20130315
  2. NORCO [Concomitant]
     Indication: CHEST DISCOMFORT
     Dosage: UNK, (5/325; 1 Q 6 HR PRN)
     Dates: start: 20130315, end: 20130316
  3. NORCO [Concomitant]
     Indication: MUSCULOSKELETAL CHEST PAIN
  4. CALCITRATE [Concomitant]
     Dosage: UNK
  5. VITAMIN D [Concomitant]
     Dosage: UNK

REACTIONS (3)
  - Anaphylactic reaction [Fatal]
  - Cardio-respiratory arrest [Fatal]
  - Pulmonary embolism [Fatal]
